FAERS Safety Report 4606619-7 (Version None)
Quarter: 2005Q2

REPORT INFORMATION
  Report Type: 
  Country: None (occurrence: None)
  Receive Date: 20050223
  Receipt Date: 20040422
  Transmission Date: 20051028
  Serious: Yes (Hospitalization)
  Sender: FDA-Public Use
  Company Number: WAES  0404USA02009

PATIENT
  Age: 74 Year
  Sex: Female

DRUGS (9)
  1. ZOCOR [Suspect]
     Indication: HYPERCHOLESTEROLAEMIA
     Dosage: 20 MG/PO
     Route: 048
     Dates: start: 20010422, end: 20030228
  2. ZOCOR [Suspect]
     Indication: HYPERCHOLESTEROLAEMIA
     Dosage: 80 MG/PO
     Route: 048
     Dates: start: 20030423, end: 20030729
  3. AMBIEN [Concomitant]
  4. CARDIZEM [Concomitant]
  5. COUMADIN [Concomitant]
  6. K-DUR 10 [Concomitant]
  7. LASIX [Concomitant]
  8. PREVACID [Concomitant]
  9. SYNTHROID [Concomitant]

REACTIONS (5)
  - ALANINE AMINOTRANSFERASE INCREASED [None]
  - ASPARTATE AMINOTRANSFERASE INCREASED [None]
  - HEPATIC CYST [None]
  - LIVER FUNCTION TEST ABNORMAL [None]
  - MYOPATHY [None]
